FAERS Safety Report 9522126 (Version 1)
Quarter: 2013Q1

REPORT INFORMATION
  Report Type: Spontaneous
  Country: US (occurrence: None)
  Receive Date: 20130305
  Receipt Date: 20130305
  Transmission Date: 20140127
  Serious: Yes (Hospitalization)
  Sender: FDA-Public Use
  Company Number: 163-21880-12032152

PATIENT
  Age: 81 Year
  Sex: Male
  Weight: 72.58 kg

DRUGS (5)
  1. REVLIMID [Suspect]
     Indication: PLASMA CELL MYELOMA
     Dosage: QD X 21 DAYS
     Route: 048
     Dates: start: 20110909
  2. IRON [Concomitant]
  3. LASIX (FUROSEMIDE) (UNKNOWN) [Concomitant]
  4. METFORMIN (METFORMIN) (UNKNOWN) [Concomitant]
  5. VYTORIN (INEGY) (UNKNOWN) [Concomitant]

REACTIONS (7)
  - Rib fracture [None]
  - Pneumonia [None]
  - White blood cell count decreased [None]
  - Rash pustular [None]
  - Full blood count decreased [None]
  - Decreased appetite [None]
  - Dysgeusia [None]
